FAERS Safety Report 25561484 (Version 1)
Quarter: 2025Q3

REPORT INFORMATION
  Report Type: Spontaneous
  Country: US (occurrence: US)
  Receive Date: 20250716
  Receipt Date: 20250716
  Transmission Date: 20251021
  Serious: No
  Sender: MALLINCKRODT
  Company Number: US-MALLINCKRODT-MNK202504246

PATIENT
  Sex: Female

DRUGS (2)
  1. CORTICOTROPIN [Suspect]
     Active Substance: CORTICOTROPIN
     Indication: Illness
     Dosage: 80 UNITS
     Route: 058
  2. RITUXAN [Concomitant]
     Active Substance: RITUXIMAB
     Dates: start: 20220310, end: 20220424

REACTIONS (2)
  - Nausea [Unknown]
  - Vomiting [Unknown]
